FAERS Safety Report 16000944 (Version 1)
Quarter: 2019Q1

REPORT INFORMATION
  Report Type: Report from Study
  Country: US (occurrence: US)
  Receive Date: 20190225
  Receipt Date: 20190225
  Transmission Date: 20190418
  Serious: Yes (Hospitalization, Other)
  Sender: FDA-Public Use
  Company Number: US-BAYER-2019-037512

PATIENT
  Age: 38 Year
  Sex: Female
  Weight: 65.31 kg

DRUGS (4)
  1. ADEMPAS [Suspect]
     Active Substance: RIOCIGUAT
     Indication: PULMONARY ARTERIAL HYPERTENSION
     Dosage: 0.5 MG, TID
     Route: 048
     Dates: start: 20181116
  2. XARELTO [Concomitant]
     Active Substance: RIVAROXABAN
  3. ORENITRAM [Concomitant]
     Active Substance: TREPROSTINIL
     Dosage: 9.25 MG, TID
  4. LETAIRIS [Concomitant]
     Active Substance: AMBRISENTAN

REACTIONS (3)
  - Hospitalisation [Unknown]
  - Blood pressure abnormal [Unknown]
  - Clostridium difficile infection [Unknown]

NARRATIVE: CASE EVENT DATE: 20181116
